FAERS Safety Report 12187622 (Version 1)
Quarter: 2016Q1

REPORT INFORMATION
  Report Type: Spontaneous
  Country: US (occurrence: US)
  Receive Date: 20160317
  Receipt Date: 20160317
  Transmission Date: 20160526
  Serious: No
  Sender: FDA-Public Use
  Company Number: US-PERRIGO-15US005274

PATIENT
  Age: 39 Year
  Sex: Male
  Weight: 64.4 kg

DRUGS (1)
  1. NICOTINE POLACRILEX [Suspect]
     Active Substance: NICOTINE
     Indication: SMOKING CESSATION THERAPY
     Dosage: 4 MG, HOURLY, UP TO 10 TO 15 TIMES DAILY
     Route: 002
     Dates: start: 201409

REACTIONS (4)
  - Nausea [Unknown]
  - Decreased appetite [Unknown]
  - Nicotine dependence [Unknown]
  - Hyperhidrosis [Unknown]

NARRATIVE: CASE EVENT DATE: 2014
